FAERS Safety Report 24758161 (Version 1)
Quarter: 2024Q4

REPORT INFORMATION
  Report Type: Spontaneous
  Country: US (occurrence: US)
  Receive Date: 20241220
  Receipt Date: 20241220
  Transmission Date: 20250115
  Serious: No
  Sender: UCB
  Company Number: US-UCBSA-2024055701

PATIENT
  Age: 4 Decade

DRUGS (2)
  1. BIMZELX [Suspect]
     Active Substance: BIMEKIZUMAB-BKZX
     Indication: Product used for unknown indication
     Dosage: UNK
  2. SKYRIZI [Suspect]
     Active Substance: RISANKIZUMAB-RZAA
     Indication: Inflammation
     Dosage: UNK

REACTIONS (5)
  - Weight decreased [Unknown]
  - Inflammation [Unknown]
  - Swelling [Unknown]
  - Condition aggravated [Unknown]
  - Hypersensitivity [Unknown]
